FAERS Safety Report 7968818-6 (Version None)
Quarter: 2011Q4

REPORT INFORMATION
  Report Type: 
  Country: None (occurrence: None)
  Receive Date: 20111209
  Receipt Date: 20111129
  Transmission Date: 20120403
  Serious: Yes (Death, Hospitalization)
  Sender: FDA-Public Use
  Company Number: PHHY2010US26100

PATIENT
  Sex: Male
  Weight: 73.469 kg

DRUGS (5)
  1. HYDREA [Concomitant]
  2. EXJADE [Suspect]
     Dosage: 1000 MG, BID
     Route: 048
  3. DEMEROL [Concomitant]
  4. OXYCODONE HCL [Concomitant]
  5. XOLOX [Concomitant]

REACTIONS (4)
  - DEATH [None]
  - ARTHRALGIA [None]
  - SICKLE CELL ANAEMIA WITH CRISIS [None]
  - PAIN [None]
